FAERS Safety Report 4631330-6 (Version None)
Quarter: 2005Q2

REPORT INFORMATION
  Report Type: 
  Country: None (occurrence: None)
  Receive Date: 20050406
  Receipt Date: 20050329
  Transmission Date: 20051028
  Serious: Yes (Hospitalization)
  Sender: FDA-Public Use
  Company Number: 163-20785-04030238

PATIENT
  Age: 54 Year
  Sex: Female

DRUGS (2)
  1. THALOMID [Suspect]
     Indication: SARCOIDOSIS
     Dosage: 100 MG, BID, ORAL
     Route: 048
     Dates: start: 20010802
  2. DILANTIN [Concomitant]

REACTIONS (6)
  - CONVULSION [None]
  - DISEASE PROGRESSION [None]
  - DRUG LEVEL DECREASED [None]
  - DRUG WITHDRAWAL SYNDROME [None]
  - NERVOUS SYSTEM DISORDER [None]
  - SARCOIDOSIS [None]
